FAERS Safety Report 11520881 (Version 1)
Quarter: 2015Q3

REPORT INFORMATION
  Report Type: Spontaneous
  Country: US (occurrence: None)
  Receive Date: 20150917
  Receipt Date: 20150917
  Transmission Date: 20151125
  Serious: Yes (Disabling)
  Sender: FDA-Public Use
  Company Number: None

PATIENT
  Age: 40 Year
  Sex: Female

DRUGS (2)
  1. CIPRO [Suspect]
     Active Substance: CIPROFLOXACIN HYDROCHLORIDE
     Indication: POST PROCEDURAL INFECTION
     Route: 048
     Dates: start: 20150615
  2. AVELOX [Suspect]
     Active Substance: MOXIFLOXACIN HYDROCHLORIDE
     Indication: POST PROCEDURAL INFECTION
     Route: 048
     Dates: start: 20090615, end: 20090617

REACTIONS (1)
  - Small fibre neuropathy [None]

NARRATIVE: CASE EVENT DATE: 20090612
